FAERS Safety Report 17816156 (Version 1)
Quarter: 2020Q2

REPORT INFORMATION
  Report Type: Spontaneous
  Country: IT (occurrence: IT)
  Receive Date: 20200522
  Receipt Date: 20200522
  Transmission Date: 20200714
  Serious: Yes (Life-Threatening)
  Sender: FDA-Public Use
  Company Number: IT-ROCHE-2604185

PATIENT
  Age: 68 Year
  Sex: Female
  Weight: 60 kg

DRUGS (7)
  1. CARDIOASPIRIN [Concomitant]
     Active Substance: ASPIRIN
     Indication: THROMBOSIS PROPHYLAXIS
     Route: 048
  2. BISOPROLOL FUMARATE. [Concomitant]
     Active Substance: BISOPROLOL FUMARATE
     Indication: TACHYCARDIA
     Route: 048
  3. EUTIROX [Concomitant]
     Active Substance: LEVOTHYROXINE SODIUM
     Indication: HYPOTHYROIDISM
     Route: 048
  4. RITUXIMAB. [Suspect]
     Active Substance: RITUXIMAB
     Indication: ANTI-NEUTROPHIL CYTOPLASMIC ANTIBODY POSITIVE VASCULITIS
     Route: 041
     Dates: start: 20191030, end: 20191107
  5. DIDROGYL [Concomitant]
     Active Substance: CALCIFEDIOL
     Indication: VITAMIN D DEFICIENCY
     Route: 048
  6. ATORVASTATIN [Concomitant]
     Active Substance: ATORVASTATIN
     Indication: DYSLIPIDAEMIA
     Route: 048
  7. ZEFFIX [Concomitant]
     Active Substance: LAMIVUDINE
     Indication: HEPATITIS B
     Route: 048

REACTIONS (5)
  - Erythema [Recovered/Resolved]
  - Anaphylactic reaction [Recovered/Resolved]
  - Urticaria [Recovered/Resolved]
  - Disorientation [Recovered/Resolved]
  - Loss of consciousness [Recovered/Resolved]

NARRATIVE: CASE EVENT DATE: 20191107
